FAERS Safety Report 13535172 (Version 5)
Quarter: 2019Q2

REPORT INFORMATION
  Report Type: Spontaneous
  Country: US (occurrence: US)
  Receive Date: 20170511
  Receipt Date: 20190513
  Transmission Date: 20190711
  Serious: Yes (Hospitalization)
  Sender: FDA-Public Use
  Company Number: US-VIFOR (INTERNATIONAL) INC.-VIT-2017-00733

PATIENT
  Age: 69 Year
  Sex: Female

DRUGS (24)
  1. COZAAR [Concomitant]
     Active Substance: LOSARTAN POTASSIUM
  2. COLCRYS [Concomitant]
     Active Substance: COLCHICINE
  3. VALSARTAN. [Concomitant]
     Active Substance: VALSARTAN
  4. ASPIRIN. [Concomitant]
     Active Substance: ASPIRIN
  5. ZETIA [Concomitant]
     Active Substance: EZETIMIBE
  6. CARVEDILOL. [Concomitant]
     Active Substance: CARVEDILOL
  7. ALBUTEROL. [Concomitant]
     Active Substance: ALBUTEROL
  8. VELTASSA [Suspect]
     Active Substance: PATIROMER
     Indication: HYPERKALAEMIA
     Dosage: 1 PACKET
     Route: 048
     Dates: start: 20160810
  9. LASIX [Concomitant]
     Active Substance: FUROSEMIDE
  10. TRESIBA [Concomitant]
     Active Substance: INSULIN DEGLUDEC
  11. VELTASSA [Suspect]
     Active Substance: PATIROMER
     Indication: ESSENTIAL HYPERTENSION
     Route: 048
     Dates: start: 20160811
  12. SINGULAIR [Concomitant]
     Active Substance: MONTELUKAST SODIUM
  13. VITAMIN D [Concomitant]
     Active Substance: VITAMIN D NOS
  14. VELTASSA [Suspect]
     Active Substance: PATIROMER
     Route: 048
     Dates: start: 20160812
  15. PROAIR HFA [Concomitant]
     Active Substance: ALBUTEROL SULFATE
  16. VITAMIN E [Concomitant]
     Active Substance: .ALPHA.-TOCOPHEROL
  17. NOVOLOG [Concomitant]
     Active Substance: INSULIN ASPART
  18. TRAMADOL. [Concomitant]
     Active Substance: TRAMADOL
  19. HYDROCHLOROTHIAZID [Concomitant]
     Active Substance: HYDROCHLOROTHIAZIDE
  20. WARFARIN [Concomitant]
     Active Substance: WARFARIN
  21. CENTRUM [Concomitant]
     Active Substance: VITAMINS
  22. CALTRATE WITH VITAMIN D [Concomitant]
     Active Substance: CALCIUM CARBONATE\CHOLECALCIFEROL
     Dosage: 300-800
  23. COREG [Concomitant]
     Active Substance: CARVEDILOL
  24. CENTRUM SILVER [Concomitant]
     Active Substance: MINERALS\VITAMINS

REACTIONS (8)
  - Blister [Not Recovered/Not Resolved]
  - Dyspnoea [Not Recovered/Not Resolved]
  - Thrombosis [Not Recovered/Not Resolved]
  - Peripheral swelling [Not Recovered/Not Resolved]
  - Constipation [Not Recovered/Not Resolved]
  - Urinary tract infection [Not Recovered/Not Resolved]
  - Renal failure [Not Recovered/Not Resolved]
  - Lung disorder [Not Recovered/Not Resolved]

NARRATIVE: CASE EVENT DATE: 2016
